FAERS Safety Report 5043934-X (Version None)
Quarter: 2006Q2

REPORT INFORMATION
  Report Type: 
  Country: None (occurrence: None)
  Receive Date: 20060601
  Receipt Date: 20060417
  Transmission Date: 20061013
  Serious: No
  Sender: FDA-Public Use
  Company Number: 2006-BP-04353BP

PATIENT
  Age: 81 Year
  Sex: Female

DRUGS (1)
  1. SPIRIVA [Suspect]
     Dosage: 72 MCG, (18 MCG, 4 IN 1 D), PO
     Route: 048
     Dates: start: 20060403

REACTIONS (3)
  - DIARRHOEA [None]
  - INCORRECT ROUTE OF DRUG ADMINISTRATION [None]
  - WEIGHT DECREASED [None]
